FAERS Safety Report 7386224-2 (Version None)
Quarter: 2011Q1

REPORT INFORMATION
  Report Type: 
  Country: None (occurrence: None)
  Receive Date: 20110323
  Receipt Date: 20110309
  Transmission Date: 20110831
  Serious: Yes (Hospitalization)
  Sender: FDA-Public Use
  Company Number: 020359

PATIENT
  Sex: Male

DRUGS (14)
  1. TRANEXAMIC ACID [Concomitant]
  2. METHOTREXATE [Suspect]
     Indication: RHEUMATOID ARTHRITIS
     Dosage: 8 MG, ORAL; 8 MG, ORAL; 4 MG, ORAL;
     Route: 048
     Dates: start: 20090808, end: 20100926
  3. METHOTREXATE [Suspect]
     Indication: RHEUMATOID ARTHRITIS
     Dosage: 8 MG, ORAL; 8 MG, ORAL; 4 MG, ORAL;
     Route: 048
     Dates: start: 20101023, end: 20101212
  4. METHOTREXATE [Suspect]
     Indication: RHEUMATOID ARTHRITIS
     Dosage: 8 MG, ORAL; 8 MG, ORAL; 4 MG, ORAL;
     Route: 048
     Dates: start: 20101218, end: 20110305
  5. COUGH AND COLD PREPARATIONS [Concomitant]
  6. ACETAMINOPHEN [Concomitant]
  7. CERTOLIZUMAB PEGOL (CERTOLIZUMAB PEGOL) [Suspect]
     Indication: RHEUMATOID ARTHRITIS
     Dosage: SEE IMAGE:  SUBCUTANEOUS
     Route: 058
     Dates: start: 20091217
  8. CERTOLIZUMAB PEGOL (CERTOLIZUMAB PEGOL) [Suspect]
     Indication: RHEUMATOID ARTHRITIS
     Dosage: SEE IMAGE:  SUBCUTANEOUS
     Route: 058
     Dates: start: 20100705, end: 20100924
  9. CERTOLIZUMAB PEGOL (CERTOLIZUMAB PEGOL) [Suspect]
     Indication: RHEUMATOID ARTHRITIS
     Dosage: SEE IMAGE:  SUBCUTANEOUS
     Route: 058
     Dates: start: 20101022, end: 20110225
  10. CERTOLIZUMAB PEGOL (CERTOLIZUMAB PEGOL) [Suspect]
     Indication: RHEUMATOID ARTHRITIS
     Dosage: SEE IMAGE:  SUBCUTANEOUS
     Route: 058
     Dates: end: 20100618
  11. PREDNISOLONE [Suspect]
     Indication: RHEUMATOID ARTHRITIS
     Dosage: 5 MG, ORAL
     Route: 048
     Dates: start: 20090611
  12. REBAMIPIDE [Concomitant]
  13. LOXOPROFEN SODIUM [Concomitant]
  14. DIMEMORFAN PHOSPHATE [Concomitant]

REACTIONS (8)
  - BRONCHIOLITIS [None]
  - PNEUMONIA BACTERIAL [None]
  - PNEUMONIA PRIMARY ATYPICAL [None]
  - NEUTROPHIL PERCENTAGE DECREASED [None]
  - SPUTUM CULTURE POSITIVE [None]
  - IMMUNE SYSTEM DISORDER [None]
  - CHLAMYDIA TEST POSITIVE [None]
  - SYNOVIAL CYST [None]
